FAERS Safety Report 11633501 (Version 1)
Quarter: 2015Q4

REPORT INFORMATION
  Report Type: Spontaneous
  Country: US (occurrence: US)
  Receive Date: 20151015
  Receipt Date: 20151015
  Transmission Date: 20160304
  Serious: No
  Sender: FDA-Public Use
  Company Number: US-009507513-1510USA004723

PATIENT
  Sex: Female

DRUGS (1)
  1. NEXPLANON [Suspect]
     Active Substance: ETONOGESTREL
     Indication: CONTRACEPTION
     Dosage: UNK
     Route: 059
     Dates: start: 20150930

REACTIONS (3)
  - Implant site haemorrhage [Recovering/Resolving]
  - Implant site infection [Recovering/Resolving]
  - Implant site extravasation [Recovering/Resolving]

NARRATIVE: CASE EVENT DATE: 2015
